FAERS Safety Report 17416225 (Version 1)
Quarter: 2020Q1

REPORT INFORMATION
  Report Type: Spontaneous
  Country: BR (occurrence: BR)
  Receive Date: 20200213
  Receipt Date: 20200213
  Transmission Date: 20200409
  Serious: Yes (Hospitalization, Other)
  Sender: FDA-Public Use
  Company Number: BR-JNJFOC-20200210054

PATIENT
  Age: 66 Year
  Sex: Female
  Weight: 64 kg

DRUGS (10)
  1. APIXABAN [Concomitant]
     Active Substance: APIXABAN
     Indication: ARRHYTHMIA
     Dosage: 5 MG, BID
     Dates: start: 2018
  2. PURAN [Concomitant]
     Active Substance: LEVOTHYROXINE SODIUM
     Indication: THYROID DISORDER
     Dosage: UNK
     Dates: start: 2018
  3. INSULIN [Concomitant]
     Active Substance: INSULIN NOS
     Indication: DIABETES MELLITUS
     Dosage: UNK
     Dates: start: 2018
  4. SELOZOK [Concomitant]
     Active Substance: METOPROLOL SUCCINATE
     Dosage: 25 MG
     Dates: start: 2018
  5. FUROSEMIDE. [Concomitant]
     Active Substance: FUROSEMIDE
     Dosage: 40 MG
     Dates: start: 2018
  6. ESPIRONOLACTONA [Concomitant]
     Active Substance: SPIRONOLACTONE
     Dosage: UNK
     Dates: start: 2018
  7. FORXIGA [Concomitant]
     Active Substance: DAPAGLIFLOZIN
     Indication: DIABETES MELLITUS
     Dosage: 10 MG
     Dates: start: 201912
  8. ARADOIS [Concomitant]
     Active Substance: LOSARTAN POTASSIUM
     Dosage: UNK
     Dates: start: 2018
  9. RIVAROXABAN [Suspect]
     Active Substance: RIVAROXABAN
     Indication: ARRHYTHMIA
     Dosage: UNK
     Route: 048
     Dates: end: 2018
  10. ANCORON [Concomitant]
     Active Substance: AMIODARONE HYDROCHLORIDE
     Dosage: UNK
     Dates: start: 2018

REACTIONS (2)
  - Cardiac arrest [Recovered/Resolved]
  - Arrhythmia [Not Recovered/Not Resolved]

NARRATIVE: CASE EVENT DATE: 201910
